FAERS Safety Report 10018679 (Version 1)
Quarter: 2014Q1

REPORT INFORMATION
  Report Type: Report from Study
  Country: US (occurrence: US)
  Receive Date: 20140318
  Receipt Date: 20140318
  Transmission Date: 20141002
  Serious: Yes (Hospitalization, Other)
  Sender: FDA-Public Use
  Company Number: US-ALEXION PHARMACEUTICALS INC.-A200700225

PATIENT
  Sex: Female

DRUGS (1)
  1. SOLIRIS [Suspect]
     Indication: PAROXYSMAL NOCTURNAL HAEMOGLOBINURIA
     Dosage: UNK

REACTIONS (6)
  - Transfusion reaction [Unknown]
  - Renal failure chronic [Not Recovered/Not Resolved]
  - Haemoglobin decreased [Unknown]
  - Pyrexia [Unknown]
  - Haematocrit decreased [Unknown]
  - Oropharyngeal pain [Unknown]
